FAERS Safety Report 7048912-7 (Version None)
Quarter: 2010Q4

REPORT INFORMATION
  Report Type: 
  Country: None (occurrence: None)
  Receive Date: 20101012
  Receipt Date: 20101004
  Transmission Date: 20110411
  Serious: Yes (Other)
  Sender: FDA-Public Use
  Company Number: 018648

PATIENT
  Sex: Female

DRUGS (8)
  1. KEPPRA [Suspect]
     Indication: CONVULSION
     Dosage: 500 MG QD SINCE APPROXIMATELY 18 MONTHS ORAL
     Route: 048
  2. KEPPRA [Suspect]
     Indication: EPILEPSY
     Dosage: 500 MG QD SINCE APPROXIMATELY 18 MONTHS ORAL
     Route: 048
  3. CHEMOTHERAPEUTICS NOS (CYTOSTATICS/CHEMOTHERAPY) [Suspect]
     Indication: COLON CANCER
  4. ENALAPRIL MALEATE [Concomitant]
  5. METOPROLOL TARTRATE [Concomitant]
  6. IMOVANE [Concomitant]
  7. OXASCAND [Concomitant]
  8. ADALAT [Concomitant]

REACTIONS (1)
  - THROMBOCYTOPENIA [None]
